FAERS Safety Report 13510993 (Version 1)
Quarter: 2017Q2

REPORT INFORMATION
  Report Type: Spontaneous
  Country: SE (occurrence: SE)
  Receive Date: 20170503
  Receipt Date: 20170503
  Transmission Date: 20170830
  Serious: Yes (Other)
  Sender: FDA-Public Use
  Company Number: SE-TEVA-763793ISR

PATIENT
  Sex: Female

DRUGS (1)
  1. QUETIAPINE ACTAVIS [Suspect]
     Active Substance: QUETIAPINE
     Dates: end: 20160920

REACTIONS (1)
  - Cardiac disorder [Unknown]
